FAERS Safety Report 13875757 (Version 1)
Quarter: 2017Q3

REPORT INFORMATION
  Report Type: Spontaneous
  Country: CN (occurrence: CN)
  Receive Date: 20170817
  Receipt Date: 20170817
  Transmission Date: 20171127
  Serious: Yes (Hospitalization)
  Sender: FDA-Public Use
  Company Number: CN-ROCHE-1975479

PATIENT
  Age: 7 Month
  Sex: Female
  Weight: 6.5 kg

DRUGS (6)
  1. AMOXICILLIN SODIUM/SULBACTAM SODIUM [Suspect]
     Active Substance: AMPICILLIN SODIUM\SULBACTAM SODIUM
     Indication: SEPSIS
     Route: 041
     Dates: start: 20170603, end: 20170605
  2. BENZYLPENICILLIN SODIUM [Suspect]
     Active Substance: PENICILLIN G SODIUM
     Indication: SEPSIS
     Route: 041
     Dates: start: 20170528, end: 20170603
  3. GLUCOSE [Concomitant]
     Active Substance: DEXTROSE
     Route: 041
     Dates: start: 20170524, end: 20170605
  4. GLUCOSE [Concomitant]
     Active Substance: DEXTROSE
     Route: 041
     Dates: start: 20170603, end: 20170605
  5. ROCEPHIN [Suspect]
     Active Substance: CEFTRIAXONE SODIUM
     Indication: SEPSIS
     Route: 041
     Dates: start: 20170524, end: 20170605
  6. GLUCOSE [Concomitant]
     Active Substance: DEXTROSE
     Route: 041
     Dates: start: 20170528, end: 20170603

REACTIONS (2)
  - Papule [Recovering/Resolving]
  - Pyrexia [Recovering/Resolving]

NARRATIVE: CASE EVENT DATE: 20170603
